FAERS Safety Report 8155943-2 (Version None)
Quarter: 2012Q1

REPORT INFORMATION
  Report Type: 
  Country: None (occurrence: None)
  Receive Date: 20120216
  Receipt Date: 20120208
  Transmission Date: 20120608
  Serious: Yes (Other)
  Sender: FDA-Public Use
  Company Number: AUR-APL-2012-00879

PATIENT
  Age: 0 Year
  Sex: Female
  Weight: 3.37 kg

DRUGS (2)
  1. FOLSAURE RATIOPHARM (FOLIC ACID) [Concomitant]
  2. SERTRALINE HYDROCHLORIDE [Suspect]
     Indication: ANXIETY DISORDER
     Dosage: (100 MG, 1 D), TRANSPLACENTAL
     Route: 064
     Dates: start: 20101120, end: 20110812

REACTIONS (3)
  - MATERNAL DRUGS AFFECTING FOETUS [None]
  - MYOCLONUS [None]
  - CAESAREAN SECTION [None]
